FAERS Safety Report 13853652 (Version 1)
Quarter: 2017Q3

REPORT INFORMATION
  Report Type: Spontaneous
  Country: US (occurrence: US)
  Receive Date: 20170809
  Receipt Date: 20170809
  Transmission Date: 20171127
  Serious: Yes (Hospitalization)
  Sender: FDA-Public Use
  Company Number: US-SA-2017SA143556

PATIENT
  Sex: Male

DRUGS (2)
  1. PLAVIX [Suspect]
     Active Substance: CLOPIDOGREL BISULFATE
     Indication: THROMBOSIS PROPHYLAXIS
     Route: 048
     Dates: start: 201404, end: 20140512
  2. PLAVIX [Suspect]
     Active Substance: CLOPIDOGREL BISULFATE
     Indication: THROMBOSIS PROPHYLAXIS
     Route: 048
     Dates: start: 2009

REACTIONS (13)
  - Gastrointestinal haemorrhage [Unknown]
  - Anaemia [Unknown]
  - Contusion [Unknown]
  - Malaise [Unknown]
  - Chest pain [Unknown]
  - Haematemesis [Unknown]
  - Asthenia [Unknown]
  - Pain [Unknown]
  - Pyrexia [Unknown]
  - Product quality issue [Unknown]
  - Confusional state [Unknown]
  - Nausea [Unknown]
  - Dyspnoea [Unknown]

NARRATIVE: CASE EVENT DATE: 20140512
